FAERS Safety Report 5293906-5 (Version None)
Quarter: 2007Q2

REPORT INFORMATION
  Report Type: 
  Country: None (occurrence: None)
  Receive Date: 20070411
  Receipt Date: 20070330
  Transmission Date: 20071010
  Serious: Yes (Other)
  Sender: FDA-Public Use
  Company Number: US-PFIZER INC-2007026413

PATIENT
  Sex: Female

DRUGS (3)
  1. DILANTIN [Suspect]
     Indication: CONVULSION
  2. KEPPRA [Suspect]
     Indication: CONVULSION
  3. VITAMINS [Concomitant]

REACTIONS (7)
  - AMNESIA [None]
  - CONVULSION [None]
  - DECREASED APPETITE [None]
  - DRUG INEFFECTIVE [None]
  - SURGERY [None]
  - VAGAL NERVE STIMULATOR IMPLANTATION [None]
  - WEIGHT DECREASED [None]
